FAERS Safety Report 11544413 (Version 6)
Quarter: 2019Q2

REPORT INFORMATION
  Report Type: Spontaneous
  Country: US (occurrence: US)
  Receive Date: 20150924
  Receipt Date: 20190410
  Transmission Date: 20190711
  Serious: No
  Sender: FDA-Public Use
  Company Number: US-PFIZER INC-2015317352

PATIENT
  Age: 40 Year
  Sex: Female
  Weight: 99.79 kg

DRUGS (3)
  1. SOMAVERT [Suspect]
     Active Substance: PEGVISOMANT
     Indication: ACROMEGALY
     Dosage: 30 MG, DAILY
     Dates: start: 20090301
  2. SOMAVERT [Suspect]
     Active Substance: PEGVISOMANT
     Dosage: 30 MG, DAILY
     Route: 058
     Dates: start: 201003
  3. SOMAVERT [Suspect]
     Active Substance: PEGVISOMANT
     Dosage: 15 MG, 2X/DAY
     Route: 058
     Dates: end: 201805

REACTIONS (10)
  - Blood chloride increased [Unknown]
  - Blood bilirubin decreased [Unknown]
  - Insulin-like growth factor increased [Not Recovered/Not Resolved]
  - Blood alkaline phosphatase increased [Unknown]
  - Headache [Not Recovered/Not Resolved]
  - Product use issue [Unknown]
  - Haemoglobin increased [Unknown]
  - Malaise [Unknown]
  - Hyperhidrosis [Unknown]
  - Hepatic enzyme increased [Not Recovered/Not Resolved]
